FAERS Safety Report 11318637 (Version 2)
Quarter: 2015Q3

REPORT INFORMATION
  Report Type: Spontaneous
  Country: DE (occurrence: DE)
  Receive Date: 20150729
  Receipt Date: 20150917
  Transmission Date: 20151125
  Serious: Yes (Death, Hospitalization, Other)
  Sender: FDA-Public Use
  Company Number: DE-AMGEN-DEUSP2015075488

PATIENT
  Age: 68 Year
  Sex: Female
  Weight: 69 kg

DRUGS (10)
  1. PANTOPRAZOLE SODIUM. [Concomitant]
     Active Substance: PANTOPRAZOLE SODIUM
     Indication: PROPHYLAXIS
     Dosage: 80 MG, UNK
     Dates: start: 20110201, end: 20121010
  2. BISOPROLOL [Concomitant]
     Active Substance: BISOPROLOL
     Dosage: 2.5 MG, UNK
     Dates: end: 20121010
  3. XGEVA [Suspect]
     Active Substance: DENOSUMAB
     Indication: METASTASES TO BONE
     Dosage: 120 MG, UNK
     Route: 058
     Dates: start: 20121002, end: 20121010
  4. EXEMESTAN [Concomitant]
     Active Substance: EXEMESTANE
     Dosage: 14 MG/M2, UNK
     Dates: start: 20120620, end: 20121010
  5. RAMIPRIL. [Concomitant]
     Active Substance: RAMIPRIL
     Dosage: 5 MG, UNK
     Dates: end: 20121010
  6. NOVALGIN [Concomitant]
     Active Substance: METAMIZOLE SODIUM
     Indication: ADVERSE EVENT
     Dosage: 160 DROPS, UNK
     Dates: start: 20110201, end: 20121010
  7. VALORON                            /00205402/ [Concomitant]
     Active Substance: TILIDINE HYDROCHLORIDE
     Indication: PAIN
     Dosage: 300 MG, UNK
     Dates: start: 20110201, end: 20121010
  8. EZETIMIBA [Concomitant]
     Dosage: 10 MG, UNK
     Dates: start: 20030401, end: 20131210
  9. LYRICA [Concomitant]
     Active Substance: PREGABALIN
     Indication: PAIN
     Dosage: 200 MG, UNK
     Dates: start: 20110201, end: 20121010
  10. SIMVASTATIN. [Concomitant]
     Active Substance: SIMVASTATIN
     Dosage: 40 MG, UNK
     Dates: start: 20030401, end: 20121010

REACTIONS (5)
  - Anaemia [Not Recovered/Not Resolved]
  - Death [Fatal]
  - Tumour lysis syndrome [Not Recovered/Not Resolved]
  - Blood bilirubin increased [Not Recovered/Not Resolved]
  - General physical health deterioration [Not Recovered/Not Resolved]

NARRATIVE: CASE EVENT DATE: 20121002
